FAERS Safety Report 5763075-3 (Version None)
Quarter: 2008Q2

REPORT INFORMATION
  Report Type: 
  Country: None (occurrence: None)
  Receive Date: 20080609
  Receipt Date: 20080605
  Transmission Date: 20081010
  Serious: Yes (Death, Hospitalization)
  Sender: FDA-Public Use
  Company Number: MX-ABBOTT-08P-107-0455078-00

PATIENT
  Sex: Male

DRUGS (1)
  1. KALETRA [Suspect]
     Indication: HIV INFECTION
     Dosage: TWO 200/50 MG TABLETS TWICE DAILY
     Route: 048
     Dates: start: 20060323

REACTIONS (2)
  - ANAL INJURY [None]
  - LYMPHOMA [None]
